FAERS Safety Report 11566261 (Version 1)
Quarter: 2015Q3

REPORT INFORMATION
  Report Type: Spontaneous
  Country: US (occurrence: US)
  Receive Date: 20150916
  Receipt Date: 20150916
  Transmission Date: 20151125
  Serious: No
  Sender: FDA-Public Use
  Company Number: US-ELI_LILLY_AND_COMPANY-US200906000373

PATIENT
  Sex: Female

DRUGS (1)
  1. FORTEO [Suspect]
     Active Substance: TERIPARATIDE
     Dosage: 20 UG, UNK
     Dates: start: 20080902, end: 20090522

REACTIONS (3)
  - Muscle spasms [Recovered/Resolved]
  - Musculoskeletal stiffness [Recovered/Resolved]
  - Nausea [Recovered/Resolved]
